FAERS Safety Report 4597640-6 (Version None)
Quarter: 2005Q1

REPORT INFORMATION
  Report Type: 
  Country: None (occurrence: None)
  Receive Date: 20050303
  Receipt Date: 20050224
  Transmission Date: 20050727
  Serious: Yes (Other)
  Sender: FDA-Public Use
  Company Number: US-GLAXOSMITHKLINE-A0547845A

PATIENT
  Age: 34 Year

DRUGS (5)
  1. LAMICTAL [Suspect]
     Indication: BIPOLAR DISORDER
  2. SEROQUEL [Concomitant]
     Dosage: 50MG PER DAY
  3. FOLIC ACID [Concomitant]
  4. PRENATAL VITAMINS [Concomitant]
  5. SYNTHROID [Concomitant]

REACTIONS (2)
  - ABORTION SPONTANEOUS [None]
  - DRUG EXPOSURE DURING PREGNANCY [None]
